FAERS Safety Report 22597411 (Version 1)
Quarter: 2023Q2

REPORT INFORMATION
  Report Type: Spontaneous
  Country: US (occurrence: None)
  Receive Date: 20230614
  Receipt Date: 20230614
  Transmission Date: 20230722
  Serious: No
  Sender: FDA-Public Use
  Company Number: US-Axsome Therapeutics, Inc.-AXS202303-000386

PATIENT
  Age: 29 Year
  Sex: Female
  Weight: 44.9 kg

DRUGS (2)
  1. AUVELITY [Suspect]
     Active Substance: BUPROPION HYDROCHLORIDE\DEXTROMETHORPHAN HYDROBROMIDE
     Indication: Product used for unknown indication
     Dosage: UNK
     Route: 065
  2. VALIUM [Concomitant]
     Active Substance: DIAZEPAM
     Indication: Product used for unknown indication
     Dosage: UNK
     Route: 065

REACTIONS (11)
  - Arachnodactyly [Unknown]
  - Pectus excavatum [Recovering/Resolving]
  - Skin disorder [Unknown]
  - Marfanoid habitus [Unknown]
  - Eye disorder [Unknown]
  - Knee deformity [Unknown]
  - Hiccups [Unknown]
  - Scar [Unknown]
  - Electrocardiogram abnormal [Unknown]
  - Body mass index decreased [Unknown]
  - Arthropathy [Unknown]
